FAERS Safety Report 5763890-6 (Version None)
Quarter: 2008Q2

REPORT INFORMATION
  Report Type: 
  Country: None (occurrence: None)
  Receive Date: 20080606
  Receipt Date: 20080606
  Transmission Date: 20081010
  Serious: Yes (Other)
  Sender: FDA-Public Use
  Company Number: None

PATIENT
  Sex: Female
  Weight: 90.9 kg

DRUGS (1)
  1. FLUCONAZOLE [Suspect]

REACTIONS (2)
  - PANCYTOPENIA [None]
  - TRANSAMINASES INCREASED [None]
